FAERS Safety Report 7681596-3 (Version None)
Quarter: 2011Q3

REPORT INFORMATION
  Report Type: 
  Country: None (occurrence: None)
  Receive Date: 20110812
  Receipt Date: 20110803
  Transmission Date: 20111222
  Serious: Yes (Hospitalization, Other)
  Sender: FDA-Public Use
  Company Number: PHHY2011US68186

PATIENT
  Sex: Female
  Weight: 86 kg

DRUGS (4)
  1. ZOLOFT [Concomitant]
     Indication: DEPRESSION
     Dosage: 100 MG, DAILY
     Route: 048
     Dates: start: 20110214
  2. LASIX [Concomitant]
     Indication: HYPERTENSION
  3. FLEXERIL [Concomitant]
     Indication: MYALGIA
  4. GLEEVEC [Suspect]
     Indication: CHRONIC MYELOID LEUKAEMIA
     Dosage: 200 MG, QD
     Route: 048
     Dates: start: 20090201

REACTIONS (7)
  - HYPOTHYROIDISM [None]
  - INSOMNIA [None]
  - ULCER HAEMORRHAGE [None]
  - HYPOGLYCAEMIA [None]
  - TRICHORRHEXIS [None]
  - FATIGUE [None]
  - GASTROINTESTINAL HAEMORRHAGE [None]
